FAERS Safety Report 15384054 (Version 1)
Quarter: 2018Q3

REPORT INFORMATION
  Report Type: Report from Study
  Country: None (occurrence: US)
  Receive Date: 20180914
  Receipt Date: 20180914
  Transmission Date: 20181010
  Serious: Yes (Other)
  Sender: FDA-Public Use
  Company Number: US-ABBVIE-18K-163-2400430-00

PATIENT
  Age: 60 Year
  Sex: Male
  Weight: 102.15 kg

DRUGS (2)
  1. HUMIRA [Suspect]
     Active Substance: ADALIMUMAB
     Indication: CROHN^S DISEASE
     Route: 058
     Dates: start: 20171229, end: 20180526
  2. HUMIRA [Suspect]
     Active Substance: ADALIMUMAB
     Route: 058
     Dates: start: 2018

REACTIONS (17)
  - Decreased appetite [Recovered/Resolved]
  - Musculoskeletal stiffness [Unknown]
  - Dysgeusia [Not Recovered/Not Resolved]
  - Lymphadenopathy [Recovering/Resolving]
  - Oesophageal carcinoma [Not Recovered/Not Resolved]
  - Neck pain [Unknown]
  - Spinal fusion surgery [Unknown]
  - Cholecystectomy [Unknown]
  - Fatigue [Recovering/Resolving]
  - Hiatus hernia [Unknown]
  - Pericardial disease [Unknown]
  - Dermatitis acneiform [Unknown]
  - Spinal fusion surgery [Unknown]
  - Intervertebral disc degeneration [Unknown]
  - Post procedural complication [Unknown]
  - Scar [Unknown]
  - Chest pain [Unknown]

NARRATIVE: CASE EVENT DATE: 2018
